FAERS Safety Report 9892237 (Version 1)
Quarter: 2014Q1

REPORT INFORMATION
  Report Type: Spontaneous
  Country: US (occurrence: US)
  Receive Date: 20140212
  Receipt Date: 20140212
  Transmission Date: 20141002
  Serious: No
  Sender: FDA-Public Use
  Company Number: US-MALLINCKRODT-T201304987

PATIENT
  Age: 45 Year
  Sex: Female
  Weight: 90.7 kg

DRUGS (11)
  1. FENTANYL TRANSDERMAL SYSTEM [Suspect]
     Indication: PAIN
     Dosage: 50 UG/HR, Q 48 HRS
     Route: 062
     Dates: start: 20131106
  2. MORPHINE SULFATE [Concomitant]
     Indication: BREAKTHROUGH PAIN
     Dosage: 15 MG, Q 6 HRS
     Route: 048
  3. GLYBURIDE [Concomitant]
     Indication: DIABETES MELLITUS
     Dosage: UNK
  4. METFORMIN [Concomitant]
     Indication: DIABETES MELLITUS
     Dosage: UNK
  5. OMEPRAZOLE [Concomitant]
     Indication: GASTROOESOPHAGEAL REFLUX DISEASE
     Dosage: UNK
  6. TRAZODONE [Concomitant]
     Indication: INSOMNIA
     Dosage: UNK
  7. FLUOXETINE [Concomitant]
     Indication: DEPRESSION
     Dosage: UNK
  8. LEVOTHYROXINE [Concomitant]
     Indication: HYPOTHYROIDISM
     Dosage: UNK
  9. TIZANIDINE [Concomitant]
     Indication: MUSCLE RELAXANT THERAPY
     Dosage: UNK
  10. METHOCARBAMOL [Concomitant]
     Indication: MUSCLE RELAXANT THERAPY
     Dosage: UNK
  11. LISINOPRIL [Concomitant]
     Indication: HYPERTENSION
     Dosage: UNK

REACTIONS (6)
  - Rhinorrhoea [Recovered/Resolved]
  - Chills [Recovered/Resolved]
  - Agitation [Recovered/Resolved]
  - Influenza like illness [Recovered/Resolved]
  - Drug effect decreased [Not Recovered/Not Resolved]
  - Product adhesion issue [Not Recovered/Not Resolved]
